FAERS Safety Report 4543858-8 (Version None)
Quarter: 2004Q4

REPORT INFORMATION
  Report Type: 
  Country: None (occurrence: None)
  Receive Date: 20041229
  Receipt Date: 20041229
  Transmission Date: 20050328
  Serious: Yes (Hospitalization)
  Sender: FDA-Public Use
  Company Number: None

PATIENT
  Age: 83 Year
  Sex: Female
  Weight: 57 kg

DRUGS (14)
  1. RITUXIMAB [Suspect]
     Indication: COOMBS TEST POSITIVE
     Dosage: 375 MG / M2 WEEKLY
     Dates: start: 20041124
  2. RITUXIMAB [Suspect]
     Indication: HAEMOLYTIC ANAEMIA
     Dosage: 375 MG / M2 WEEKLY
     Dates: start: 20041124
  3. RITUXIMAB [Suspect]
     Indication: COOMBS TEST POSITIVE
     Dosage: 375 MG / M2 WEEKLY
     Dates: start: 20041204
  4. RITUXIMAB [Suspect]
     Indication: HAEMOLYTIC ANAEMIA
     Dosage: 375 MG / M2 WEEKLY
     Dates: start: 20041204
  5. RITUXIMAB [Suspect]
     Indication: COOMBS TEST POSITIVE
     Dosage: 375 MG / M2 WEEKLY
     Dates: start: 20041210
  6. RITUXIMAB [Suspect]
     Indication: HAEMOLYTIC ANAEMIA
     Dosage: 375 MG / M2 WEEKLY
     Dates: start: 20041210
  7. RITUXIMAB [Suspect]
     Indication: COOMBS TEST POSITIVE
     Dosage: 375 MG / M2 WEEKLY
     Dates: start: 20041217
  8. RITUXIMAB [Suspect]
     Indication: HAEMOLYTIC ANAEMIA
     Dosage: 375 MG / M2 WEEKLY
     Dates: start: 20041217
  9. SOLU-CORTEF W/ RITUXAN [Concomitant]
  10. SYNTHROID [Concomitant]
  11. ZOCOR [Concomitant]
  12. COZAAR [Concomitant]
  13. FOSAMAX [Concomitant]
  14. ALBUTEROL [Concomitant]

REACTIONS (1)
  - SPLENIC RUPTURE [None]
